FAERS Safety Report 11792775 (Version 1)
Quarter: 2015Q4

REPORT INFORMATION
  Report Type: Spontaneous
  Country: PL (occurrence: PL)
  Receive Date: 20151202
  Receipt Date: 20151202
  Transmission Date: 20160305
  Serious: Yes (Other)
  Sender: FDA-Public Use
  Company Number: PL-SUN PHARMACEUTICAL INDUSTRIES LTD-2015R1-106991

PATIENT
  Age: 63 Year
  Sex: Male
  Weight: 85 kg

DRUGS (2)
  1. FUROSEMIDE. [Suspect]
     Active Substance: FUROSEMIDE
     Indication: CARDIAC FAILURE
     Dosage: 40 MG, BID
     Route: 065
  2. FUROSEMIDE. [Suspect]
     Active Substance: FUROSEMIDE
     Indication: CARDIAC FAILURE
     Dosage: 40 MG 1 X DAY IN THE MORNING ON AN EMPTY STOMACH
     Route: 065

REACTIONS (2)
  - Drug ineffective [Unknown]
  - Drug resistance [Unknown]
